FAERS Safety Report 8386960-5 (Version None)
Quarter: 2012Q2

REPORT INFORMATION
  Report Type: 
  Country: None (occurrence: None)
  Receive Date: 20120523
  Receipt Date: 20120509
  Transmission Date: 20120825
  Serious: Yes (Hospitalization)
  Sender: FDA-Public Use
  Company Number: US-2012-10526

PATIENT
  Age: 6 Year
  Sex: Male

DRUGS (4)
  1. TACROLIMUS [Suspect]
     Indication: PROPHYLAXIS AGAINST GRAFT VERSUS HOST DISEASE
     Dosage: , INTRAVENOUS, 0.5 MG MILLIGRAM(S), DAILY DOSE ORAL
     Route: 042
  2. MELPHALAN HYDROCHLORIDE [Suspect]
     Indication: T-CELL TYPE ACUTE LEUKAEMIA
     Dosage: 90 MG/M2, FOR 2 DAYS
  3. BUSULFAN [Suspect]
     Indication: T-CELL TYPE ACUTE LEUKAEMIA
     Dosage: 4 MG/KG, FOR 4 DAYS, PARENTERAL
     Route: 051
  4. METHOTREXATE [Suspect]
     Indication: PROPHYLAXIS AGAINST GRAFT VERSUS HOST DISEASE

REACTIONS (9)
  - NEPHROTIC SYNDROME [None]
  - GRAFT VERSUS HOST DISEASE IN SKIN [None]
  - HISTIOCYTOSIS HAEMATOPHAGIC [None]
  - CYSTITIS HAEMORRHAGIC [None]
  - OBLITERATIVE BRONCHIOLITIS [None]
  - DIARRHOEA [None]
  - GRAFT VERSUS HOST DISEASE IN INTESTINE [None]
  - PLEURAL EFFUSION [None]
  - HYPOTENSION [None]
